FAERS Safety Report 7239285-5 (Version None)
Quarter: 2011Q1

REPORT INFORMATION
  Report Type: 
  Country: None (occurrence: None)
  Receive Date: 20110119
  Receipt Date: 20110119
  Transmission Date: 20110831
  Serious: Yes (Hospitalization)
  Sender: FDA-Public Use
  Company Number: None

PATIENT
  Sex: Male
  Weight: 84.369 kg

DRUGS (1)
  1. VIDEX EC [Suspect]
     Indication: ACQUIRED IMMUNODEFICIENCY SYNDROME
     Dosage: 400 MG DAILY PO
     Route: 048
     Dates: start: 20011226, end: 20031016

REACTIONS (6)
  - NODULAR REGENERATIVE HYPERPLASIA [None]
  - TRANSAMINASES INCREASED [None]
  - SPLENOMEGALY [None]
  - HEPATIC ATROPHY [None]
  - VARICES OESOPHAGEAL [None]
  - HYPERSPLENISM [None]
